FAERS Safety Report 11687723 (Version 4)
Quarter: 2015Q4

REPORT INFORMATION
  Report Type: Spontaneous
  Country: DE (occurrence: DE)
  Receive Date: 20151030
  Receipt Date: 20151217
  Transmission Date: 20160304
  Serious: Yes (Hospitalization, Other)
  Sender: FDA-Public Use
  Company Number: DE-PFIZER INC-2015330328

PATIENT
  Age: 72 Year
  Sex: Female

DRUGS (13)
  1. SALBUTAMOL [Concomitant]
     Active Substance: ALBUTEROL
     Dosage: UNK, AS NEEDED
  2. LYRICA [Suspect]
     Active Substance: PREGABALIN
     Indication: NEURITIS
     Dosage: 150 MG, 2X/DAY
     Dates: end: 20150910
  3. FUROSEMID [Concomitant]
     Active Substance: FUROSEMIDE
     Dosage: 40 MG, 3X/WEEK
     Dates: start: 1996
  4. TOLPERISONE HYDROCHLORIDE [Concomitant]
     Active Substance: TOLPERISONE HYDROCHLORIDE
     Dosage: UNK, AS NEEDED
     Dates: start: 1996
  5. LYRICA [Suspect]
     Active Substance: PREGABALIN
     Indication: NEURALGIA
     Dosage: 50 MG, UNK
     Dates: start: 2005
  6. FOSAMAX [Concomitant]
     Active Substance: ALENDRONATE SODIUM
     Dosage: 70 MG, 1X1/WEEK
     Dates: start: 1996
  7. DOCITON [Concomitant]
     Active Substance: PROPRANOLOL HYDROCHLORIDE
     Dosage: 40 MG, 2X/DAY
     Dates: start: 1996
  8. ESTRADIOL. [Concomitant]
     Active Substance: ESTRADIOL
     Dosage: 2 MG, 1X/DAY
     Dates: start: 1996
  9. NOVAMINSULFON [Concomitant]
     Active Substance: METAMIZOLE
     Indication: PAIN
     Dosage: 500 MG, 2X/DAY
     Dates: start: 1996
  10. ASPIRIN. [Concomitant]
     Active Substance: ASPIRIN
     Dosage: 100 MG, 1X/DAY
  11. PANTOPRAZOL [Concomitant]
     Active Substance: PANTOPRAZOLE SODIUM
     Dosage: 40 MG, 2X/DAY
     Dates: start: 1996
  12. NOVAMINSULFON [Concomitant]
     Active Substance: METAMIZOLE
     Dosage: 500 MG, 4X/DAY
  13. BROMAZANIL [Concomitant]
     Active Substance: BROMAZEPAM
     Dosage: 6 MG, 1X0.5 DF IN THE EVENING
     Dates: start: 1996

REACTIONS (38)
  - Abdominal distension [Unknown]
  - Gait disturbance [Unknown]
  - Oropharyngeal pain [Unknown]
  - Goitre [Unknown]
  - Chronic gastritis [Unknown]
  - Altered state of consciousness [Unknown]
  - Oral pain [Unknown]
  - Thirst [Unknown]
  - Fall [Recovered/Resolved]
  - Polyneuropathy [Unknown]
  - Back pain [Unknown]
  - Eye movement disorder [Unknown]
  - Neck pain [Unknown]
  - Emphysema [Unknown]
  - Tobacco abuse [Unknown]
  - Seizure [Recovered/Resolved]
  - Dry mouth [Unknown]
  - Peripheral coldness [Unknown]
  - Abnormal dreams [Unknown]
  - Nasal congestion [Unknown]
  - Sciatica [Unknown]
  - Arthralgia [Unknown]
  - Visual impairment [Recovered/Resolved]
  - Hypercholesterolaemia [Unknown]
  - Syncope [Unknown]
  - Myalgia [Unknown]
  - Thrombosis [Unknown]
  - Bone contusion [Unknown]
  - Constipation [Recovered/Resolved]
  - General physical health deterioration [Unknown]
  - Blood glucose decreased [Unknown]
  - Respiratory disorder [Unknown]
  - Osteoporosis [Unknown]
  - Weight decreased [Unknown]
  - Hypotension [Unknown]
  - Nasal dryness [Unknown]
  - Pain in extremity [Unknown]
  - Hypergammaglobulinaemia benign monoclonal [Unknown]

NARRATIVE: CASE EVENT DATE: 2014
